FAERS Safety Report 8004209-X (Version None)
Quarter: 2011Q4

REPORT INFORMATION
  Report Type: 
  Country: None (occurrence: None)
  Receive Date: 20111223
  Receipt Date: 20111221
  Transmission Date: 20120403
  Serious: No
  Sender: FDA-Public Use
  Company Number: US-BIOGENIDEC-2011BI014678

PATIENT
  Age: 52 Year
  Sex: Male

DRUGS (4)
  1. TYSABRI [Suspect]
     Indication: MULTIPLE SCLEROSIS
     Route: 042
     Dates: start: 20060922, end: 20091106
  2. TYSABRI [Suspect]
     Route: 042
     Dates: start: 20110428
  3. COPAXONE [Concomitant]
     Indication: MULTIPLE SCLEROSIS
  4. AVONEX [Concomitant]
     Indication: MULTIPLE SCLEROSIS
     Route: 030

REACTIONS (6)
  - NUCLEAR MAGNETIC RESONANCE IMAGING ABNORMAL [None]
  - DIPLOPIA [None]
  - MULTIPLE SCLEROSIS [None]
  - COORDINATION ABNORMAL [None]
  - TREMOR [None]
  - HEART RATE INCREASED [None]
